FAERS Safety Report 11307899 (Version 1)
Quarter: 2015Q3

REPORT INFORMATION
  Report Type: Report from Study
  Country: US (occurrence: US)
  Receive Date: 20150724
  Receipt Date: 20150724
  Transmission Date: 20151125
  Serious: Yes (Hospitalization, Other)
  Sender: FDA-Public Use
  Company Number: US-ROCHE-746658

PATIENT

DRUGS (5)
  1. OXALIPLATIN. [Suspect]
     Active Substance: OXALIPLATIN
     Indication: COLORECTAL CANCER METASTATIC
     Dosage: ON DAY 1
     Route: 065
  2. FLUOROURACIL. [Suspect]
     Active Substance: FLUOROURACIL
     Indication: COLORECTAL CANCER METASTATIC
     Dosage: 48 FLAT CONTINUOUS INFUSION STARTING ON DAY 1
     Route: 065
  3. BEVACIZUMAB [Suspect]
     Active Substance: BEVACIZUMAB
     Indication: COLORECTAL CANCER METASTATIC
     Route: 065
  4. IRINOTECAN [Suspect]
     Active Substance: IRINOTECAN
     Indication: COLORECTAL CANCER METASTATIC
     Dosage: DRUG ELUTING BEAD IRINOTECAN (LOADED WITH 100 MG IRINOTECAN 100-300 UM BEADS)
     Route: 065
  5. FOLINIC ACID [Suspect]
     Active Substance: LEUCOVORIN
     Indication: COLORECTAL CANCER METASTATIC
     Dosage: ON DAY 1?DRUG: FOLINATE
     Route: 065

REACTIONS (18)
  - Anaemia [Unknown]
  - Hepatotoxicity [Unknown]
  - Skin disorder [Unknown]
  - Nervous system disorder [Unknown]
  - Diarrhoea [Unknown]
  - Hypertension [Unknown]
  - Vomiting [Unknown]
  - Lung disorder [Unknown]
  - Neutrophil count decreased [Unknown]
  - Thrombocytopenia [Unknown]
  - Cholecystitis [Unknown]
  - Neutropenia [Unknown]
  - Infection [Unknown]
  - Abdominal pain [Unknown]
  - Procedural hypertension [Unknown]
  - Haemobilia [Unknown]
  - Hyperbilirubinaemia [Unknown]
  - Angiopathy [Unknown]
